FAERS Safety Report 9563248 (Version 1)
Quarter: 2013Q3

REPORT INFORMATION
  Report Type: Spontaneous
  Country: GB (occurrence: GB)
  Receive Date: 20130927
  Receipt Date: 20130927
  Transmission Date: 20140515
  Serious: Yes (Other)
  Sender: FDA-Public Use
  Company Number: GB-BANPHARM-20131728

PATIENT
  Age: 56 Year
  Sex: Male
  Weight: 110 kg

DRUGS (2)
  1. IBUPROFEN UNKNOWN PRODUCT [Suspect]
     Dates: start: 20130909
  2. ATENOLOL [Concomitant]
     Dates: start: 20130520, end: 20130909

REACTIONS (1)
  - Dyspnoea [Recovered/Resolved]
